FAERS Safety Report 10133539 (Version 1)
Quarter: 2014Q2

REPORT INFORMATION
  Report Type: Spontaneous
  Country: BR (occurrence: BR)
  Receive Date: 20140428
  Receipt Date: 20140428
  Transmission Date: 20141212
  Serious: Yes (Other)
  Sender: FDA-Public Use
  Company Number: BR-GLAXOSMITHKLINE-A1034437B

PATIENT
  Sex: Female

DRUGS (5)
  1. CLAVULIN [Suspect]
     Indication: SINUSITIS
     Route: 064
  2. DIPYRONE [Suspect]
     Indication: PRODUCT USED FOR UNKNOWN INDICATION
     Route: 064
  3. PLASIL [Suspect]
     Indication: PRODUCT USED FOR UNKNOWN INDICATION
  4. FOLIC ACID [Suspect]
     Indication: PRODUCT USED FOR UNKNOWN INDICATION
  5. TYLENOL [Suspect]
     Indication: PAIN
     Route: 064

REACTIONS (2)
  - Pertussis [Not Recovered/Not Resolved]
  - Foetal exposure during pregnancy [Unknown]
